FAERS Safety Report 12856058 (Version 1)
Quarter: 2016Q4

REPORT INFORMATION
  Report Type: Spontaneous
  Country: US (occurrence: US)
  Receive Date: 20161017
  Receipt Date: 20161017
  Transmission Date: 20170207
  Serious: Yes (Other)
  Sender: FDA-Public Use
  Company Number: None

PATIENT
  Age: 68 Year
  Sex: Male
  Weight: 77.11 kg

DRUGS (6)
  1. ASPRIN [Concomitant]
     Active Substance: ASPIRIN
  2. ATORVASTATIN 80MG TABLET [Suspect]
     Active Substance: ATORVASTATIN
     Indication: CARDIAC DISORDER
     Route: 048
     Dates: start: 20130430, end: 20160920
  3. ATORVASTATIN 80MG TABLET [Suspect]
     Active Substance: ATORVASTATIN
     Indication: BLOOD CHOLESTEROL INCREASED
     Route: 048
     Dates: start: 20130430, end: 20160920
  4. VITAMIN C [Concomitant]
     Active Substance: ASCORBIC ACID
  5. AMLODIPINE BESYLATE. [Concomitant]
     Active Substance: AMLODIPINE BESYLATE
  6. UTMS [Concomitant]

REACTIONS (7)
  - Back pain [None]
  - Hypoaesthesia [None]
  - Pain [None]
  - Arthralgia [None]
  - Amnesia [None]
  - Peripheral swelling [None]
  - Joint swelling [None]

NARRATIVE: CASE EVENT DATE: 20150822
